FAERS Safety Report 6086966-5 (Version None)
Quarter: 2009Q1

REPORT INFORMATION
  Report Type: 
  Country: None (occurrence: None)
  Receive Date: 20090223
  Receipt Date: 20090209
  Transmission Date: 20090719
  Serious: Yes (Other)
  Sender: FDA-Public Use
  Company Number: US-ROCHE-613796

PATIENT
  Sex: Male

DRUGS (2)
  1. PEG-INTERFERON A-2A (RO 25-8310) [Suspect]
     Indication: HEPATITIS C
     Dosage: PATIENT IN WEEK 20 OF TREATMENT
     Route: 065
     Dates: start: 20080926
  2. RIBAVIRIN [Suspect]
     Indication: HEPATITIS C
     Dosage: PATIENT IN WEEK 20 OF TREATMENT
     Route: 065
     Dates: start: 20080926

REACTIONS (7)
  - AGGRESSION [None]
  - CHOLELITHIASIS [None]
  - DEPRESSION [None]
  - FALL [None]
  - MENISCUS LESION [None]
  - PAIN [None]
  - SWELLING [None]
